FAERS Safety Report 23848831 (Version 2)
Quarter: 2024Q2

REPORT INFORMATION
  Report Type: Spontaneous
  Country: FR (occurrence: FR)
  Receive Date: 20240513
  Receipt Date: 20240609
  Transmission Date: 20240716
  Serious: Yes (Other)
  Sender: FDA-Public Use
  Company Number: FR-SHIONOGI, INC-2024001038

PATIENT

DRUGS (3)
  1. CEFIDEROCOL SULFATE TOSYLATE [Suspect]
     Active Substance: CEFIDEROCOL SULFATE TOSYLATE
     Indication: Acinetobacter infection
     Dosage: 2 G, 1 PER 8 HOUR
     Route: 042
     Dates: start: 20230223, end: 20230316
  2. CEFIDEROCOL SULFATE TOSYLATE [Suspect]
     Active Substance: CEFIDEROCOL SULFATE TOSYLATE
     Indication: Haematological infection
  3. COLISTIN [Suspect]
     Active Substance: COLISTIN
     Indication: Acinetobacter infection
     Dosage: UNK
     Route: 065

REACTIONS (5)
  - Pathogen resistance [Unknown]
  - Drug resistance [Unknown]
  - Infection [Recovered/Resolved]
  - Prescribed overdose [Unknown]
  - Treatment failure [Unknown]
